FAERS Safety Report 9426503 (Version 1)
Quarter: 2013Q3

REPORT INFORMATION
  Report Type: Spontaneous
  Country: US (occurrence: None)
  Receive Date: 20130729
  Receipt Date: 20130729
  Transmission Date: 20140515
  Serious: Yes (Other)
  Sender: FDA-Public Use
  Company Number: None

PATIENT
  Age: 17 Year
  Sex: Female
  Weight: 49.9 kg

DRUGS (1)
  1. LEVETIRACETAM [Suspect]
     Dosage: 1 TAB
     Route: 048
     Dates: start: 20130511, end: 20130625

REACTIONS (4)
  - Grand mal convulsion [None]
  - Joint dislocation [None]
  - Ligament injury [None]
  - Product quality issue [None]
